FAERS Safety Report 20637651 (Version 1)
Quarter: 2022Q1

REPORT INFORMATION
  Report Type: Spontaneous
  Country: HU (occurrence: HU)
  Receive Date: 20220325
  Receipt Date: 20220325
  Transmission Date: 20220424
  Serious: Yes (Other)
  Sender: FDA-Public Use
  Company Number: HU-002147023-NVSC2022HU056894

PATIENT
  Sex: Female

DRUGS (8)
  1. IBANDRONIC ACID [Suspect]
     Active Substance: IBANDRONIC ACID
     Indication: Product used for unknown indication
     Route: 048
  2. CYCLOPHOSPHAMIDE [Suspect]
     Active Substance: CYCLOPHOSPHAMIDE
     Indication: Breast cancer metastatic
     Route: 065
     Dates: start: 20071002, end: 20080118
  3. FLUOROURACIL [Suspect]
     Active Substance: FLUOROURACIL
     Indication: Breast cancer metastatic
     Route: 065
     Dates: start: 20071002, end: 20080118
  4. FLUOROURACIL [Suspect]
     Active Substance: FLUOROURACIL
     Indication: HER2 negative breast cancer
  5. RIBOCICLIB [Suspect]
     Active Substance: RIBOCICLIB
     Indication: Breast cancer metastatic
     Dosage: DAILY FOR 21 DAYS, FOLLOWED BY A 7-DAY REST PERIOD
     Route: 065
     Dates: start: 2019
  6. LETROZOLE [Suspect]
     Active Substance: LETROZOLE
     Indication: Breast cancer metastatic
     Route: 065
     Dates: start: 2019
  7. LETROZOLE [Suspect]
     Active Substance: LETROZOLE
     Route: 065
     Dates: start: 20080308, end: 2014
  8. DOXORUBICIN [Suspect]
     Active Substance: DOXORUBICIN
     Indication: Breast cancer metastatic
     Route: 065
     Dates: start: 20071002, end: 20080118

REACTIONS (13)
  - Blood glucose decreased [Unknown]
  - Gamma-glutamyltransferase increased [Unknown]
  - Metastases to bone [Unknown]
  - Hydrothorax [Recovering/Resolving]
  - Pleural effusion [Recovering/Resolving]
  - Carbohydrate antigen 15-3 increased [Unknown]
  - Breast cancer metastatic [Unknown]
  - Dyspnoea [Recovered/Resolved]
  - Metastases to lung [Recovering/Resolving]
  - Blood calcium decreased [Unknown]
  - Neutropenia [Unknown]
  - Leukopenia [Unknown]
  - Metastases to lymph nodes [Recovering/Resolving]

NARRATIVE: CASE EVENT DATE: 20190624
